FAERS Safety Report 17898829 (Version 1)
Quarter: 2020Q2

REPORT INFORMATION
  Report Type: Spontaneous
  Country: JP (occurrence: JP)
  Receive Date: 20200615
  Receipt Date: 20200615
  Transmission Date: 20200714
  Serious: Yes (Hospitalization)
  Sender: FDA-Public Use
  Company Number: JP-009507513-2004JPN001448J

PATIENT
  Age: 78 Year
  Sex: Male
  Weight: 60 kg

DRUGS (17)
  1. BIOFERMIN [Concomitant]
     Active Substance: DIETARY SUPPLEMENT\PROBIOTICS
     Dosage: 1 GRAM, UNKNOWN
     Route: 065
  2. PROTECADIN [Concomitant]
     Active Substance: LAFUTIDINE
     Dosage: 10 MILLIGRAM, UNKNOWN
     Route: 048
  3. FLUTIDE [Concomitant]
     Active Substance: FLUTICASONE PROPIONATE
     Dosage: 1 DOSAGE FORM, BID
     Route: 065
  4. SENNOSIDE [Concomitant]
     Active Substance: SENNOSIDES
     Dosage: 24 MILLIGRAM, UNKNOWN
     Route: 048
  5. DIAZEPAM. [Concomitant]
     Active Substance: DIAZEPAM
     Dosage: 4 MILLIGRAM, UNKNOWN
     Route: 048
  6. AMBROXOL HYDROCHLORIDE L [Concomitant]
     Active Substance: AMBROXOL HYDROCHLORIDE
     Dosage: 1 DOSAGE FORM, UNKNOWN
     Route: 065
  7. ALEVIATIN [Concomitant]
     Active Substance: PHENYTOIN SODIUM
     Dosage: 100 MILLIGRAM, UNKNOWN
     Route: 065
  8. FLUNITRAZEPAM [Concomitant]
     Active Substance: FLUNITRAZEPAM
     Dosage: 2 MILLIGRAM, UNKNOWN
     Route: 048
  9. SPIRIVA [Concomitant]
     Active Substance: TIOTROPIUM BROMIDE MONOHYDRATE
     Dosage: 2.5 MICROGRAM, QD,1 INHALATION
     Route: 065
  10. ALLERMIST [Concomitant]
     Active Substance: FLUTICASONE FUROATE
     Dosage: 110 MICROGRAM, QD
     Route: 065
  11. THYRADIN S [Concomitant]
     Active Substance: LEVOTHYROXINE SODIUM
     Dosage: 100 MICROGRAM, UNKNOWN
     Route: 048
  12. KEYTRUDA [Suspect]
     Active Substance: PEMBROLIZUMAB
     Indication: TRANSITIONAL CELL CARCINOMA
     Dosage: 200 MILLIGRAM,UNK
     Route: 041
     Dates: start: 20180731, end: 20190716
  13. RILMAZAFONE HYDROCHLORIDE HYDRATE [Concomitant]
     Active Substance: RILMAZAFONE HYDROCHLORIDE
     Dosage: 1 MILLIGRAM, UNKNOWN
     Route: 048
  14. ATORVASTATIN CALCIUM HYDRATE [Concomitant]
     Active Substance: ATORVASTATIN CALCIUM
     Dosage: 10 MILLIGRAM, UNKNOWN
  15. URINORM [Concomitant]
     Active Substance: BENZBROMARONE
     Dosage: 50 MILLIGRAM, UNKNOWN
     Route: 048
  16. CLARITHROMYCIN. [Concomitant]
     Active Substance: CLARITHROMYCIN
     Dosage: 200 MILLIGRAM, UNKNOWN
     Route: 048
  17. THEOPHYLLINE [Concomitant]
     Active Substance: THEOPHYLLINE ANHYDROUS
     Dosage: 400 MILLIGRAM, UNKNOWN
     Route: 065

REACTIONS (1)
  - Hepatic function abnormal [Recovering/Resolving]

NARRATIVE: CASE EVENT DATE: 20190806
